FAERS Safety Report 18395602 (Version 2)
Quarter: 2020Q4

REPORT INFORMATION
  Report Type: Spontaneous
  Country: US (occurrence: US)
  Receive Date: 20201017
  Receipt Date: 20201126
  Transmission Date: 20210114
  Serious: No
  Sender: FDA-Public Use
  Company Number: US-UNITED THERAPEUTICS-UNT-2020-015900

PATIENT
  Sex: Female
  Weight: 62.59 kg

DRUGS (5)
  1. REMODULIN [Suspect]
     Active Substance: TREPROSTINIL
     Indication: PULMONARY ARTERIAL HYPERTENSION
     Dosage: UNK, CONTINUING
     Route: 041
     Dates: start: 20200811
  2. AMBRISENTAN [Concomitant]
     Active Substance: AMBRISENTAN
     Indication: PRODUCT USED FOR UNKNOWN INDICATION
     Route: 065
  3. REMODULIN [Suspect]
     Active Substance: TREPROSTINIL
     Dosage: 0.098 ?G/KG, CONTINUING
     Route: 041
     Dates: start: 2020
  4. REMODULIN [Suspect]
     Active Substance: TREPROSTINIL
     Dosage: 0.094 ?G/KG, CONTINUING
     Route: 041
     Dates: start: 2020
  5. ADCIRCA [Concomitant]
     Active Substance: TADALAFIL
     Indication: PULMONARY ARTERIAL HYPERTENSION
     Route: 065

REACTIONS (1)
  - Dermatitis contact [Unknown]

NARRATIVE: CASE EVENT DATE: 2020
